FAERS Safety Report 15566444 (Version 1)
Quarter: 2018Q4

REPORT INFORMATION
  Report Type: Spontaneous
  Country: US (occurrence: US)
  Receive Date: 20181025
  Receipt Date: 20181025
  Transmission Date: 20190205
  Serious: No
  Sender: FDA-Public Use
  Company Number: None

PATIENT
  Age: 62 Year
  Sex: Female

DRUGS (13)
  1. RASUVO [Suspect]
     Active Substance: METHOTREXATE SODIUM
     Indication: PSORIATIC ARTHROPATHY
     Dosage: ?          OTHER FREQUENCY:OTHER;?
     Route: 058
     Dates: start: 20170929
  2. BYSTOLIC [Concomitant]
     Active Substance: NEBIVOLOL HYDROCHLORIDE
  3. PROBIOTIC [Concomitant]
     Active Substance: PROBIOTICS NOS
  4. FOLIC ACID. [Concomitant]
     Active Substance: FOLIC ACID
  5. ZYRTEC [Concomitant]
     Active Substance: CETIRIZINE HYDROCHLORIDE
  6. IRON [Concomitant]
     Active Substance: IRON
  7. TYLENOL [Concomitant]
     Active Substance: ACETAMINOPHEN
  8. LEXAPRO [Concomitant]
     Active Substance: ESCITALOPRAM OXALATE
  9. CALCIUM [Concomitant]
     Active Substance: CALCIUM
  10. CO-Q 10 [Concomitant]
     Active Substance: UBIDECARENONE
  11. LETROZOLE. [Concomitant]
     Active Substance: LETROZOLE
  12. METHOTREXATE. [Concomitant]
     Active Substance: METHOTREXATE
  13. PREVACID [Concomitant]
     Active Substance: LANSOPRAZOLE

REACTIONS (2)
  - Osteoarthritis [None]
  - Knee arthroplasty [None]

NARRATIVE: CASE EVENT DATE: 20181016
